FAERS Safety Report 22595965 (Version 1)
Quarter: 2023Q2

REPORT INFORMATION
  Report Type: Spontaneous
  Country: US (occurrence: None)
  Receive Date: 20230612
  Receipt Date: 20230612
  Transmission Date: 20230722
  Serious: Yes (Hospitalization)
  Sender: FDA-Public Use
  Company Number: None

PATIENT
  Sex: Male

DRUGS (2)
  1. OPSUMIT [Suspect]
     Active Substance: MACITENTAN
     Indication: Pulmonary arterial hypertension
     Dosage: 10MG DAILY ORAL
     Route: 048
     Dates: start: 202301
  2. TREPROSTINIL [Suspect]
     Active Substance: TREPROSTINIL

REACTIONS (5)
  - Dizziness [None]
  - Dyspnoea [None]
  - Cardiac failure congestive [None]
  - Drainage [None]
  - Bacteraemia [None]
